FAERS Safety Report 25684730 (Version 1)
Quarter: 2025Q3

REPORT INFORMATION
  Report Type: Spontaneous
  Country: EU (occurrence: EU)
  Receive Date: 20250815
  Receipt Date: 20250815
  Transmission Date: 20251021
  Serious: Yes (Life-Threatening, Other)
  Sender: AUROBINDO
  Company Number: EU-AFSSAPS-GR2025001190

PATIENT
  Age: 61 Year
  Sex: Female
  Weight: 77 kg

DRUGS (5)
  1. BISOPROLOL [Suspect]
     Active Substance: BISOPROLOL
     Indication: Product used for unknown indication
     Dosage: 18 DOSAGE FORM, ONCE A DAY(1.25 MG X18 CP)
     Route: 048
     Dates: start: 20250623, end: 20250623
  2. VALSARTAN [Suspect]
     Active Substance: VALSARTAN
     Indication: Product used for unknown indication
     Dosage: 30 DOSAGE FORM, ONCE A DAY(40 MG X 30 CP)
     Route: 048
     Dates: start: 20250623, end: 20250623
  3. BROMAZEPAM [Suspect]
     Active Substance: BROMAZEPAM
     Indication: Product used for unknown indication
     Dosage: 30 DOSAGE FORM, ONCE A DAY(6 MG X 30 TO 40 TABLETS)
     Route: 048
     Dates: start: 20250623, end: 20250623
  4. POTASSIUM CHLORIDE [Suspect]
     Active Substance: POTASSIUM CHLORIDE
     Indication: Product used for unknown indication
     Dosage: 20 DOSAGE FORM, ONCE A DAY
     Route: 048
     Dates: start: 20250623, end: 20250623
  5. KARDEGIC [Suspect]
     Active Substance: ASPIRIN DL-LYSINE
     Indication: Product used for unknown indication
     Dosage: 30 DOSAGE FORM, ONCE A DAY
     Route: 048
     Dates: start: 20250623, end: 20250623

REACTIONS (4)
  - Hyperkalaemia [Recovered/Resolved]
  - Acute kidney injury [Recovered/Resolved]
  - Poisoning deliberate [Recovered/Resolved]
  - Metabolic acidosis [Recovered/Resolved]

NARRATIVE: CASE EVENT DATE: 20250623
